FAERS Safety Report 5736426-3 (Version None)
Quarter: 2008Q2

REPORT INFORMATION
  Report Type: 
  Country: None (occurrence: None)
  Receive Date: 20080513
  Receipt Date: 20080509
  Transmission Date: 20081010
  Serious: Yes (Hospitalization)
  Sender: FDA-Public Use
  Company Number: B0511157A

PATIENT
  Age: 59 Year
  Sex: Male
  Weight: 58 kg

DRUGS (11)
  1. REQUIP [Suspect]
     Indication: PARKINSON'S DISEASE
     Dosage: 2MG THREE TIMES PER DAY
     Route: 048
     Dates: start: 20070601, end: 20080309
  2. REQUIP [Suspect]
     Dosage: 1NG THREE TIMES PER DAY
     Route: 048
     Dates: start: 20080310, end: 20080320
  3. REQUIP [Suspect]
     Dosage: 1MG TWICE PER DAY
     Route: 048
     Dates: start: 20080321, end: 20080411
  4. CARBIDOPA AND LEVODOPA [Concomitant]
     Indication: PARKINSON'S DISEASE
     Dosage: 500MG PER DAY
     Route: 048
     Dates: start: 19940701
  5. POLLAKISU [Concomitant]
     Indication: NEUROGENIC BLADDER
     Dosage: 4MG PER DAY
     Route: 048
     Dates: start: 20061103
  6. COMTAN [Concomitant]
     Indication: PARKINSON'S DISEASE
     Dosage: 400MG PER DAY
     Route: 048
     Dates: start: 20070831
  7. MARZULENE-S [Concomitant]
     Indication: GASTRITIS
     Dosage: 1.5MG PER DAY
     Route: 048
     Dates: start: 20071103
  8. CABASER [Concomitant]
     Indication: PARKINSON'S DISEASE
     Dosage: .75MG PER DAY
     Route: 048
     Dates: start: 20080319
  9. MOHRUS TAPE [Concomitant]
     Indication: BACK PAIN
     Route: 062
  10. ONON [Concomitant]
     Dosage: 50MG PER DAY
     Route: 048
     Dates: start: 20080301
  11. FLUNASE (JAPAN) [Concomitant]
     Route: 045
     Dates: start: 20080301

REACTIONS (4)
  - ALTERED STATE OF CONSCIOUSNESS [None]
  - PORIOMANIA [None]
  - SLEEP ATTACKS [None]
  - SOMNOLENCE [None]
